FAERS Safety Report 5402717-9 (Version None)
Quarter: 2007Q3

REPORT INFORMATION
  Report Type: 
  Country: None (occurrence: None)
  Receive Date: 20070801
  Receipt Date: 20070727
  Transmission Date: 20080115
  Serious: Yes (Other)
  Sender: FDA-Public Use
  Company Number: D0053635A

PATIENT
  Sex: Female
  Weight: 77 kg

DRUGS (1)
  1. VIANI MITE [Suspect]
     Indication: BRONCHITIS
     Route: 065

REACTIONS (6)
  - BRONCHOSPASM [None]
  - IRRITABILITY [None]
  - PHARMACEUTICAL PRODUCT COMPLAINT [None]
  - SLEEP DISORDER [None]
  - SUFFOCATION FEELING [None]
  - VISUAL DISTURBANCE [None]
